FAERS Safety Report 11398604 (Version 1)
Quarter: 2015Q3

REPORT INFORMATION
  Report Type: Spontaneous
  Country: US (occurrence: US)
  Receive Date: 20150820
  Receipt Date: 20150820
  Transmission Date: 20151125
  Serious: Yes (Other)
  Sender: FDA-Public Use
  Company Number: US-ACCORD-033082

PATIENT
  Age: 70 Year
  Sex: Female

DRUGS (29)
  1. NITROGLYCERIN. [Suspect]
     Active Substance: NITROGLYCERIN
     Indication: PRODUCT USED FOR UNKNOWN INDICATION
     Dosage: RECIVED 5 PILLS
  2. ADDERALL [Concomitant]
     Active Substance: AMPHETAMINE ASPARTATE\AMPHETAMINE SULFATE\DEXTROAMPHETAMINE SACCHARATE\DEXTROAMPHETAMINE SULFATE
     Indication: ATTENTION DEFICIT/HYPERACTIVITY DISORDER
  3. FOLIC ACID. [Concomitant]
     Active Substance: FOLIC ACID
  4. FLEXERIL [Concomitant]
     Active Substance: CYCLOBENZAPRINE HYDROCHLORIDE
     Indication: SURGERY
  5. DHEA [Concomitant]
     Active Substance: PRASTERONE
     Indication: SUPPLEMENTATION THERAPY
  6. BENADRYL [Concomitant]
     Active Substance: DIPHENHYDRAMINE HYDROCHLORIDE
     Indication: PRURITUS
     Dosage: QID
  7. CALCIUM PANTOTHENATE/NICOTINAMIDE/PYRIDOXINE HYDROCHLORIDE/RIBOFLAVIN/THIAMINE MONONITRATE [Concomitant]
  8. TOCOPHEROL [Concomitant]
     Active Substance: TOCOPHEROL
  9. EPIPEN [Concomitant]
     Active Substance: EPINEPHRINE
     Indication: HYPERSENSITIVITY
  10. LASIX [Concomitant]
     Active Substance: FUROSEMIDE
     Indication: SYSTEMIC LUPUS ERYTHEMATOSUS
  11. POTASSIUM [Concomitant]
     Active Substance: POTASSIUM
  12. PARLODEL [Concomitant]
     Active Substance: BROMOCRIPTINE MESYLATE
     Indication: BRAIN NEOPLASM
  13. ASCORBIC ACID. [Concomitant]
     Active Substance: ASCORBIC ACID
  14. PREVACID [Concomitant]
     Active Substance: LANSOPRAZOLE
     Dosage: BID
  15. SYNTHROID [Concomitant]
     Active Substance: LEVOTHYROXINE SODIUM
     Dosage: STRENGTH: 0.225 MCG 1 TABS
  16. ESTRADIOL. [Concomitant]
     Active Substance: ESTRADIOL
     Dosage: STRENGTH: 1 MG
  17. PERCOCET [Concomitant]
     Active Substance: ACETAMINOPHEN\OXYCODONE HYDROCHLORIDE
  18. BABY ASPIRIN [Concomitant]
     Active Substance: ASPIRIN
     Dosage: QHS
  19. ZINC OXIDE. [Concomitant]
     Active Substance: ZINC OXIDE
  20. CULTURELLE [Concomitant]
     Active Substance: LACTOBACILLUS RHAMNOSUS
     Dosage: DIGESTIVE HEALTH CULTURELLE PROBIOTIC CAPSULE
  21. RETINOL [Concomitant]
     Active Substance: RETINOL
  22. SIMVASTATIN. [Suspect]
     Active Substance: SIMVASTATIN
     Indication: BLOOD CHOLESTEROL INCREASED
     Dosage: STRENGTH: 20 MG.?STARTED 1 YEAR AGO
     Route: 048
     Dates: end: 20150712
  23. RANITIDINE [Concomitant]
     Active Substance: RANITIDINE\RANITIDINE HYDROCHLORIDE
  24. COLECALCIFEROL [Concomitant]
     Active Substance: CHOLECALCIFEROL
  25. CYANOCOBALAMIN. [Concomitant]
     Active Substance: CYANOCOBALAMIN
  26. FLUTICASONE [Concomitant]
     Active Substance: FLUTICASONE\FLUTICASONE PROPIONATE
     Indication: NASAL CONGESTION
     Dosage: NASAL SPRAY FLUTICASONE 15 MCG INHALER PRN
  27. DIVINE [Concomitant]
     Indication: PSORIASIS
  28. CALCIUM/MAGNESIUM/ZINC [Concomitant]
  29. FISH OIL [Concomitant]
     Active Substance: FISH OIL

REACTIONS (11)
  - Weight decreased [Unknown]
  - Vertigo [Unknown]
  - Blood glucose increased [Unknown]
  - Atrial fibrillation [Recovered/Resolved]
  - Vital functions abnormal [Recovered/Resolved]
  - Chest pain [Recovered/Resolved]
  - Electrocardiogram abnormal [Unknown]
  - Movement disorder [Not Recovered/Not Resolved]
  - Arthralgia [Not Recovered/Not Resolved]
  - Cardiac discomfort [Recovered/Resolved]
  - Myalgia [Not Recovered/Not Resolved]

NARRATIVE: CASE EVENT DATE: 20150520
